FAERS Safety Report 4803357-2 (Version None)
Quarter: 2005Q4

REPORT INFORMATION
  Report Type: 
  Country: None (occurrence: None)
  Receive Date: 20051013
  Receipt Date: 20051007
  Transmission Date: 20060501
  Serious: Yes (Hospitalization)
  Sender: FDA-Public Use
  Company Number: 163-20785-05090071

PATIENT
  Age: 68 Year
  Sex: Female

DRUGS (4)
  1. THALOMID [Suspect]
     Indication: MULTIPLE MYELOMA
     Dosage: 100 MG, DAILY, ORAL; 150 MG, DAILY, ORAL; 200 MG, DAILY, ORAL
     Route: 048
     Dates: start: 20050101, end: 20050101
  2. THALOMID [Suspect]
     Indication: MULTIPLE MYELOMA
     Dosage: 100 MG, DAILY, ORAL; 150 MG, DAILY, ORAL; 200 MG, DAILY, ORAL
     Route: 048
     Dates: start: 20050213, end: 20050101
  3. THALOMID [Suspect]
     Indication: MULTIPLE MYELOMA
     Dosage: 100 MG, DAILY, ORAL; 150 MG, DAILY, ORAL; 200 MG, DAILY, ORAL
     Route: 048
     Dates: start: 20050101, end: 20050815
  4. DEXAMETHASONE [Suspect]
     Indication: DRUG USE FOR UNKNOWN INDICATION

REACTIONS (3)
  - CONSTIPATION [None]
  - FATIGUE [None]
  - HERPES ZOSTER OPHTHALMIC [None]
